FAERS Safety Report 6316620-3 (Version None)
Quarter: 2009Q3

REPORT INFORMATION
  Report Type: 
  Country: None (occurrence: None)
  Receive Date: 20090820
  Receipt Date: 20090814
  Transmission Date: 20100115
  Serious: Yes (Other)
  Sender: FDA-Public Use
  Company Number: JP-ASTRAZENECA-2009SE06821

PATIENT
  Age: 70 Year
  Sex: Male
  Weight: 46 kg

DRUGS (10)
  1. CASODEX [Suspect]
     Indication: PROSTATE CANCER
     Route: 048
     Dates: start: 20041201, end: 20050601
  2. CASODEX [Suspect]
     Route: 048
     Dates: start: 20060601, end: 20071101
  3. CASODEX [Suspect]
     Route: 048
     Dates: start: 20080904, end: 20090604
  4. BUP-4 [Suspect]
     Route: 048
     Dates: start: 20090205, end: 20090604
  5. ZOLADEX [Concomitant]
     Dosage: DOSE UNKNOWN
     Route: 058
     Dates: start: 20041201, end: 20050601
  6. ADOAIR [Concomitant]
     Dosage: DOSE UNKNOWN
     Route: 055
  7. SPIRIVA [Concomitant]
     Dosage: DOSE UNKNOWN
     Route: 055
  8. CLARITH [Concomitant]
     Route: 048
  9. SINGULAIR [Concomitant]
     Route: 048
  10. MUCOSOLVAN L [Concomitant]
     Route: 048

REACTIONS (1)
  - LEUKOENCEPHALOPATHY [None]
